FAERS Safety Report 25467303 (Version 1)
Quarter: 2025Q2

REPORT INFORMATION
  Report Type: Spontaneous
  Country: PL (occurrence: PL)
  Receive Date: 20250623
  Receipt Date: 20250623
  Transmission Date: 20250717
  Serious: Yes (Other)
  Sender: MYLAN
  Company Number: PL-002147023-NVSC2025PL091317

PATIENT
  Age: 72 Year
  Sex: Female

DRUGS (4)
  1. ZOLEDRONIC ACID [Suspect]
     Active Substance: ZOLEDRONIC ACID
     Indication: Breast cancer
  2. RIBOCICLIB [Suspect]
     Active Substance: RIBOCICLIB
     Indication: Breast cancer
  3. RIBOCICLIB [Suspect]
     Active Substance: RIBOCICLIB
     Dosage: 600 MILLIGRAM, QD
  4. RIBOCICLIB [Suspect]
     Active Substance: RIBOCICLIB
     Dosage: 400 MILLIGRAM, QD

REACTIONS (5)
  - Neutropenia [Unknown]
  - Hepatotoxicity [Unknown]
  - Hepatic enzyme increased [Unknown]
  - Liver function test increased [Unknown]
  - Therapy partial responder [Unknown]
